FAERS Safety Report 9517032 (Version 2)
Quarter: 2013Q3

REPORT INFORMATION
  Report Type: Spontaneous
  Country: US (occurrence: US)
  Receive Date: 20130911
  Receipt Date: 20130930
  Transmission Date: 20140515
  Serious: Yes (Hospitalization)
  Sender: FDA-Public Use
  Company Number: US-PFIZER INC-2013257618

PATIENT
  Age: 76 Year
  Sex: Male

DRUGS (1)
  1. SUTENT [Suspect]
     Indication: NEOPLASM MALIGNANT
     Dosage: 50 MG EVERY DAY, 4 WEEKS ON / 2 WEEKS OFF
     Route: 048
     Dates: start: 20130608, end: 20130828

REACTIONS (1)
  - Pneumonia [Recovering/Resolving]
